FAERS Safety Report 20944912 (Version 1)
Quarter: 2022Q2

REPORT INFORMATION
  Report Type: Spontaneous
  Country: US (occurrence: None)
  Receive Date: 20220609
  Receipt Date: 20220609
  Transmission Date: 20220721
  Serious: No
  Sender: FDA-Public Use
  Company Number: None

PATIENT
  Age: 85 Year
  Sex: Male
  Weight: 80.55 kg

DRUGS (10)
  1. PAXLOVID [Suspect]
     Active Substance: NIRMATRELVIR\RITONAVIR
     Indication: COVID-19
     Dosage: OTHER QUANTITY : 30 TABLET(S);?FREQUENCY : TWICE A DAY;?
     Route: 048
     Dates: start: 20220525, end: 20220531
  2. ATORVASTATIN [Concomitant]
     Active Substance: ATORVASTATIN
  3. terazosin 10 mg [Concomitant]
  4. EZETIMIBE [Concomitant]
     Active Substance: EZETIMIBE
  5. metoprolol ER 25mg [Concomitant]
  6. zolpidem 2.5 mg [Concomitant]
  7. JARDIANCE [Concomitant]
     Active Substance: EMPAGLIFLOZIN
  8. fiber capsules (psyllium) [Concomitant]
  9. OCUVITE [Concomitant]
     Active Substance: VITAMINS
  10. ASPIRIN [Concomitant]
     Active Substance: ASPIRIN

REACTIONS (1)
  - SARS-CoV-2 test positive [None]

NARRATIVE: CASE EVENT DATE: 20220525
